FAERS Safety Report 23189373 (Version 2)
Quarter: 2023Q4

REPORT INFORMATION
  Report Type: Spontaneous
  Country: IT (occurrence: IT)
  Receive Date: 20231116
  Receipt Date: 20231124
  Transmission Date: 20240109
  Serious: Yes (Life-Threatening, Hospitalization, Other)
  Sender: FDA-Public Use
  Company Number: IT-TEVA-2023-IT-2944486

PATIENT
  Age: 25 Year
  Sex: Male

DRUGS (8)
  1. CEFTRIAXONE [Suspect]
     Active Substance: CEFTRIAXONE\CEFTRIAXONE SODIUM
     Indication: Meningococcal sepsis
     Route: 065
     Dates: start: 2023, end: 2023
  2. DAPTOMYCIN [Suspect]
     Active Substance: DAPTOMYCIN
     Indication: Meningococcal sepsis
     Route: 065
     Dates: start: 2023, end: 2023
  3. RAVULIZUMAB [Suspect]
     Active Substance: RAVULIZUMAB
     Indication: Paroxysmal nocturnal haemoglobinuria
     Dosage: INFUSION
     Route: 065
     Dates: start: 202203
  4. MEROPENEM [Suspect]
     Active Substance: MEROPENEM
     Indication: Meningococcal sepsis
     Route: 065
     Dates: start: 2023, end: 2023
  5. VANCOMYCIN [Suspect]
     Active Substance: VANCOMYCIN
     Indication: Meningococcal sepsis
     Route: 065
     Dates: start: 2023, end: 2023
  6. CLINDAMYCIN [Suspect]
     Active Substance: CLINDAMYCIN
     Indication: Meningococcal sepsis
     Route: 065
     Dates: start: 2023, end: 2023
  7. CEFEPIME [Suspect]
     Active Substance: CEFEPIME HYDROCHLORIDE
     Indication: Meningococcal sepsis
     Route: 065
     Dates: start: 2023, end: 2023
  8. Immunoglobulin [Concomitant]
     Indication: Product used for unknown indication
     Dosage: 0.4 G/KG
     Route: 042
     Dates: start: 2023, end: 2023

REACTIONS (11)
  - Meningococcal sepsis [Recovering/Resolving]
  - Disseminated intravascular coagulation [Recovering/Resolving]
  - Acute respiratory distress syndrome [Recovering/Resolving]
  - Septic shock [Recovering/Resolving]
  - Acute kidney injury [Recovering/Resolving]
  - Systemic candida [Recovering/Resolving]
  - Pulmonary embolism [Recovering/Resolving]
  - Delirium [Recovering/Resolving]
  - Apical granuloma [Recovering/Resolving]
  - Bacterial infection [Recovering/Resolving]
  - Drug ineffective [Unknown]

NARRATIVE: CASE EVENT DATE: 20230101
